FAERS Safety Report 7776252-7 (Version None)
Quarter: 2011Q3

REPORT INFORMATION
  Report Type: 
  Country: None (occurrence: None)
  Receive Date: 20110921
  Receipt Date: 20110906
  Transmission Date: 20111222
  Serious: Yes (Other)
  Sender: FDA-Public Use
  Company Number: JP-2011-11448

PATIENT

DRUGS (1)
  1. CILOSTAZOL [Suspect]
     Dosage: ,ORAL
     Route: 048

REACTIONS (1)
  - HAEMOTHORAX [None]
